FAERS Safety Report 5082663-3 (Version None)
Quarter: 2006Q3

REPORT INFORMATION
  Report Type: 
  Country: None (occurrence: None)
  Receive Date: 20060814
  Receipt Date: 20060804
  Transmission Date: 20061208
  Serious: Yes (Other)
  Sender: FDA-Public Use
  Company Number: 2006096099

PATIENT
  Age: 59 Year
  Sex: Male
  Weight: 77.1115 kg

DRUGS (4)
  1. NARDIL [Suspect]
     Indication: BIPOLAR DISORDER
     Dosage: 45 MG (45 MG, 1 IN 1 D)
     Dates: start: 19850101, end: 20050101
  2. LITHIUM (LITHIUM) [Suspect]
     Indication: BIPOLAR DISORDER
     Dosage: 900 MG (900 MG, 1 IN 1 D)
     Dates: start: 19850101, end: 20050101
  3. LAMICTAL [Suspect]
     Indication: BIPOLAR DISORDER
     Dates: start: 20050701, end: 20060101
  4. MAO INHIBITORS [Concomitant]

REACTIONS (2)
  - DRUG INEFFECTIVE [None]
  - GLAUCOMA [None]
